FAERS Safety Report 16811605 (Version 2)
Quarter: 2019Q3

REPORT INFORMATION
  Report Type: Spontaneous
  Country: US (occurrence: US)
  Receive Date: 20190916
  Receipt Date: 20190923
  Transmission Date: 20191005
  Serious: Yes (Hospitalization)
  Sender: FDA-Public Use
  Company Number: US-SA-2019SA257170

PATIENT
  Sex: Male
  Weight: 77 kg

DRUGS (11)
  1. METFORMIN [Concomitant]
     Active Substance: METFORMIN HYDROCHLORIDE
  2. ADDERALL [Concomitant]
     Active Substance: AMPHETAMINE ASPARTATE\AMPHETAMINE SULFATE\DEXTROAMPHETAMINE SACCHARATE\DEXTROAMPHETAMINE SULFATE
  3. LIPITOR [Concomitant]
     Active Substance: ATORVASTATIN CALCIUM
  4. PLAVIX [Suspect]
     Active Substance: CLOPIDOGREL BISULFATE
     Dosage: UNK UNK, QD, IN THE MORNING
     Route: 048
     Dates: start: 20190508
  5. NITROGLYCERIN. [Concomitant]
     Active Substance: NITROGLYCERIN
  6. PLAVIX [Suspect]
     Active Substance: CLOPIDOGREL BISULFATE
     Indication: MYOCARDIAL INFARCTION
     Dosage: 75 MG, QD
     Route: 048
     Dates: start: 2000
  7. ATORVASTATIN CALCIUM. [Suspect]
     Active Substance: ATORVASTATIN CALCIUM
     Dosage: UNK UNK, QD, AT NIGHT
     Dates: start: 20190508
  8. HYDROCODONE [Concomitant]
     Active Substance: HYDROCODONE
     Dosage: UNK UNK, Q6H
  9. CRESTOR [Concomitant]
     Active Substance: ROSUVASTATIN CALCIUM
  10. DICLOFENAC [Concomitant]
     Active Substance: DICLOFENAC
  11. ASPIRIN 81 [Concomitant]
     Active Substance: ASPIRIN
     Dosage: UNK UNK, UNK
     Route: 065

REACTIONS (7)
  - Myocardial infarction [Unknown]
  - Feeling abnormal [Unknown]
  - Sleep disorder [Unknown]
  - Tinnitus [Unknown]
  - Labyrinthitis [Unknown]
  - Pain in extremity [Unknown]
  - Blood pressure abnormal [Unknown]
